FAERS Safety Report 19004743 (Version 5)
Quarter: 2021Q4

REPORT INFORMATION
  Report Type: Spontaneous
  Country: US (occurrence: US)
  Receive Date: 20210313
  Receipt Date: 20211221
  Transmission Date: 20220303
  Serious: Yes (Other)
  Sender: FDA-Public Use
  Company Number: US-009507513-2011USA015382

PATIENT
  Sex: Male
  Weight: 81.2 kg

DRUGS (14)
  1. SINEMET [Suspect]
     Active Substance: CARBIDOPA\LEVODOPA
     Dosage: UNK
  2. SINEMET [Suspect]
     Active Substance: CARBIDOPA\LEVODOPA
     Dosage: 25-100 MG
     Route: 048
  3. AMANTADINE [Suspect]
     Active Substance: AMANTADINE
     Indication: Dyskinesia
     Dosage: 137 MILLIGRAM, QD AT BED TIME
     Route: 048
     Dates: start: 20201008
  4. AMANTADINE [Suspect]
     Active Substance: AMANTADINE
     Dosage: 274 MILLIGRAM, 1X/DAY EVERYDAY AT BEDTIME
     Route: 048
  5. AMANTADINE [Suspect]
     Active Substance: AMANTADINE
     Dosage: 137 MG, 1X/DAY EVERYDAY AT BEDTIME
     Route: 048
     Dates: end: 2021
  6. AMANTADINE [Suspect]
     Active Substance: AMANTADINE
     Dosage: 274 MILLIGRAM, 1X/DAY EVERYDAY AT BEDTIME
     Route: 048
     Dates: start: 2021, end: 2021
  7. AMANTADINE [Suspect]
     Active Substance: AMANTADINE
     Dosage: UNK, DECREASED
     Route: 048
     Dates: start: 2021
  8. CLONAZEPAM [Concomitant]
     Active Substance: CLONAZEPAM
     Dosage: 1 MILLIGRAM
  9. CRESTOR [Concomitant]
     Active Substance: ROSUVASTATIN CALCIUM
     Dosage: 5 MILLIGRAM TABLET
     Dates: start: 2020
  10. ENTACAPONE [Concomitant]
     Active Substance: ENTACAPONE
     Dosage: 200 MILLIGRAM TABLET
  11. OMEPRAZOLE [Concomitant]
     Active Substance: OMEPRAZOLE
     Dosage: UNK
  12. PAXIL [Concomitant]
     Active Substance: PAROXETINE HYDROCHLORIDE
     Dosage: 30 MILLIGRAM TABLET
  13. SYNTHROID [Concomitant]
     Active Substance: LEVOTHYROXINE SODIUM
     Dosage: 75 MICROGRAM TABLET
  14. VITAMINS NOS [Concomitant]
     Active Substance: VITAMINS
     Dosage: DIETARY SUPPLEMENT

REACTIONS (11)
  - Hallucination [Unknown]
  - Diarrhoea infectious [Recovering/Resolving]
  - Memory impairment [Not Recovered/Not Resolved]
  - Adverse event [Unknown]
  - Middle insomnia [Not Recovered/Not Resolved]
  - Fatigue [Unknown]
  - Headache [Recovered/Resolved]
  - Dry mouth [Not Recovered/Not Resolved]
  - Constipation [Unknown]
  - Delusion [Not Recovered/Not Resolved]
  - Product dose omission issue [Unknown]

NARRATIVE: CASE EVENT DATE: 20190101
